FAERS Safety Report 7945910-3 (Version None)
Quarter: 2011Q4

REPORT INFORMATION
  Report Type: 
  Country: None (occurrence: None)
  Receive Date: 20111129
  Receipt Date: 20111128
  Transmission Date: 20120403
  Serious: No
  Sender: FDA-Public Use
  Company Number: US-B.I. PHARMACEUTICALS,INC./RIDGEFIELD-2011-BP-26836BP

PATIENT
  Age: 62 Year
  Sex: Female

DRUGS (5)
  1. COUMADIN [Concomitant]
     Indication: CARDIAC DISORDER
  2. PRAVASTATIN [Concomitant]
     Indication: CARDIAC DISORDER
  3. METOPROLOL TARTRATE [Concomitant]
     Indication: CARDIAC DISORDER
  4. DIGOXIN [Concomitant]
     Indication: CARDIAC DISORDER
  5. SPIRIVA [Suspect]
     Indication: CHRONIC OBSTRUCTIVE PULMONARY DISEASE
     Dosage: 18 MCG
     Route: 055
     Dates: start: 20111121

REACTIONS (2)
  - NASOPHARYNGITIS [None]
  - THROAT IRRITATION [None]
